FAERS Safety Report 11702012 (Version 6)
Quarter: 2016Q1

REPORT INFORMATION
  Report Type: Report from Study
  Country: FR (occurrence: FR)
  Receive Date: 20151105
  Receipt Date: 20160324
  Transmission Date: 20160525
  Serious: Yes (Hospitalization)
  Sender: FDA-Public Use
  Company Number: FR-ROCHE-1649528

PATIENT
  Age: 52 Year
  Sex: Male
  Weight: 67 kg

DRUGS (4)
  1. ATENOLOL. [Concomitant]
     Active Substance: ATENOLOL
     Indication: HYPERTENSION
     Route: 065
     Dates: start: 2010
  2. ANTHELIOS 50 [Concomitant]
     Route: 065
     Dates: start: 20150519
  3. UREA. [Concomitant]
     Active Substance: UREA
     Route: 065
     Dates: start: 20150519, end: 20150620
  4. VEMURAFENIB [Suspect]
     Active Substance: VEMURAFENIB
     Indication: MALIGNANT MELANOMA
     Dosage: LAST DOSE TAKEN ON 05 JUN 2015: 720 MG
     Route: 048
     Dates: start: 20150325

REACTIONS (2)
  - Squamous cell carcinoma of skin [Recovered/Resolved]
  - Leukoplakia oral [Recovered/Resolved]

NARRATIVE: CASE EVENT DATE: 20150616
